FAERS Safety Report 14699175 (Version 1)
Quarter: 2018Q1

REPORT INFORMATION
  Report Type: Spontaneous
  Country: TR (occurrence: TR)
  Receive Date: 20180330
  Receipt Date: 20180330
  Transmission Date: 20180509
  Serious: Yes (Hospitalization)
  Sender: FDA-Public Use
  Company Number: TR-TEVA-2018-TR-874474

PATIENT
  Age: 13 Year
  Sex: Female
  Weight: 39 kg

DRUGS (2)
  1. DEFERASIROX [Suspect]
     Active Substance: DEFERASIROX
     Indication: THALASSAEMIA
     Dosage: 25 MG/KG/DAY INITIALLY AND LATER INCREASED
     Route: 065
  2. DEFERASIROX [Suspect]
     Active Substance: DEFERASIROX
     Dosage: INCREASED TO 40 MG/KG/DAY THREE WEEKS AGO.
     Route: 065

REACTIONS (1)
  - Hyperammonaemia [Recovered/Resolved]
